FAERS Safety Report 5855633-2 (Version None)
Quarter: 2008Q3

REPORT INFORMATION
  Report Type: 
  Country: None (occurrence: None)
  Receive Date: 20080823
  Receipt Date: 20080813
  Transmission Date: 20090109
  Serious: Yes (Hospitalization)
  Sender: FDA-Public Use
  Company Number: BR-ELI_LILLY_AND_COMPANY-BR200808002729

PATIENT
  Sex: Female
  Weight: 83 kg

DRUGS (3)
  1. BYETTA [Suspect]
     Indication: DIABETES MELLITUS
     Dosage: 5 UG, 2/D
     Route: 058
     Dates: start: 20080705
  2. METFORMIN [Concomitant]
     Indication: DIABETES MELLITUS
     Dosage: 850 MG, UNK
     Route: 048
  3. EUTHYROX [Concomitant]
     Dosage: 125 MG, UNK
     Route: 048

REACTIONS (5)
  - CONVULSION [None]
  - DIARRHOEA [None]
  - HYPERGLYCAEMIA [None]
  - HYPOGLYCAEMIA [None]
  - VOMITING [None]
